FAERS Safety Report 9155103 (Version 1)
Quarter: 2013Q1

REPORT INFORMATION
  Report Type: Spontaneous
  Country: FR (occurrence: FR)
  Receive Date: 20130311
  Receipt Date: 20130311
  Transmission Date: 20140127
  Serious: Yes (Hospitalization)
  Sender: FDA-Public Use
  Company Number: FR-ROCHE-1199815

PATIENT
  Age: 87 Year
  Sex: Female

DRUGS (6)
  1. LUCENTIS [Suspect]
     Indication: AGE-RELATED MACULAR DEGENERATION
     Route: 050
     Dates: start: 20100129
  2. LUCENTIS [Suspect]
     Route: 050
     Dates: start: 20110321
  3. RILMENIDINE [Concomitant]
     Route: 065
  4. FELODIPINE [Concomitant]
     Route: 065
  5. NISIS [Concomitant]
     Route: 065
  6. LEVOTHYROX [Concomitant]

REACTIONS (1)
  - Hypertension [Recovered/Resolved with Sequelae]
